FAERS Safety Report 5588244-7 (Version None)
Quarter: 2008Q1

REPORT INFORMATION
  Report Type: 
  Country: None (occurrence: None)
  Receive Date: 20080108
  Receipt Date: 20071224
  Transmission Date: 20080703
  Serious: Yes (Hospitalization)
  Sender: FDA-Public Use
  Company Number: ADE2007-0091

PATIENT
  Age: 24 Year
  Sex: Male

DRUGS (12)
  1. SIMVASTATIN [Suspect]
     Dosage: 10MG - QD - PO
     Route: 048
     Dates: start: 20040416
  2. ADALAT [Suspect]
     Dosage: 60MG - QD - PO
     Route: 048
     Dates: start: 20020801
  3. SIROLIMUS [Suspect]
     Dosage: 2 MG - QD - PO
     Route: 048
     Dates: start: 20030818
  4. AZITHROMYCIN [Concomitant]
  5. CO-TRIMOXAZOLE [Concomitant]
  6. FERROUS GLUCONATE [Concomitant]
  7. FUROSEMIDE [Concomitant]
  8. LANTUS [Concomitant]
  9. NOVORAPID [Concomitant]
  10. OMEPRAZOLE [Concomitant]
  11. PREDNISOLONE [Concomitant]
  12. TACROLIMUS [Concomitant]

REACTIONS (4)
  - BLOOD ALBUMIN INCREASED [None]
  - OEDEMA [None]
  - PROTEINURIA [None]
  - RENAL DISORDER [None]
